FAERS Safety Report 6654434-5 (Version None)
Quarter: 2010Q1

REPORT INFORMATION
  Report Type: 
  Country: None (occurrence: None)
  Receive Date: 20100326
  Receipt Date: 20100318
  Transmission Date: 20100710
  Serious: Yes (Other)
  Sender: FDA-Public Use
  Company Number: DE-JNJFOC-20100305940

PATIENT
  Age: 6 Decade
  Sex: Female

DRUGS (5)
  1. TOPAMAX [Suspect]
     Indication: EPILEPSY
     Route: 048
  2. TOPAMAX [Suspect]
     Route: 048
  3. TOPAMAX [Suspect]
     Route: 048
  4. TRIMIPRAMINE [Concomitant]
     Route: 048
  5. BETA BLOCKER AGENT [Concomitant]
     Route: 048

REACTIONS (4)
  - DRUG INEFFECTIVE [None]
  - DRUG TOLERANCE [None]
  - HALLUCINATION, AUDITORY [None]
  - WEIGHT DECREASED [None]
